FAERS Safety Report 13667393 (Version 2)
Quarter: 2017Q2

REPORT INFORMATION
  Report Type: Spontaneous
  Country: DZ (occurrence: DZ)
  Receive Date: 20170620
  Receipt Date: 20170628
  Transmission Date: 20170830
  Serious: Yes (Death)
  Sender: FDA-Public Use
  Company Number: DZ-ROCHE-1952173

PATIENT
  Sex: Female

DRUGS (6)
  1. ASPEGIC [Concomitant]
     Active Substance: ASPIRIN DL-LYSINE
     Route: 042
     Dates: start: 20170425
  2. LOVENOX [Concomitant]
     Active Substance: ENOXAPARIN SODIUM
     Route: 058
     Dates: start: 20170425
  3. CAPTOPRIL. [Concomitant]
     Active Substance: CAPTOPRIL
  4. PLAVIX [Concomitant]
     Active Substance: CLOPIDOGREL BISULFATE
     Route: 048
     Dates: start: 20170425
  5. LOVENOX [Concomitant]
     Active Substance: ENOXAPARIN SODIUM
     Route: 042
     Dates: start: 20170425
  6. METALYSE [Suspect]
     Active Substance: TENECTEPLASE
     Indication: ACUTE MYOCARDIAL INFARCTION
     Route: 042

REACTIONS (2)
  - Ventricular fibrillation [Fatal]
  - Treatment failure [Fatal]

NARRATIVE: CASE EVENT DATE: 20170425
